FAERS Safety Report 18419074 (Version 3)
Quarter: 2020Q4

REPORT INFORMATION
  Report Type: Spontaneous
  Country: RU (occurrence: RU)
  Receive Date: 20201023
  Receipt Date: 20201111
  Transmission Date: 20210114
  Serious: Yes (Other)
  Sender: FDA-Public Use
  Company Number: RU-SA-2020SA294018

PATIENT

DRUGS (1)
  1. MYOZYME [Suspect]
     Active Substance: ALGLUCOSIDASE ALFA
     Indication: GLYCOGEN STORAGE DISEASE TYPE II
     Dosage: 1200 U, QOW
     Route: 041
     Dates: start: 20150107, end: 20201015

REACTIONS (7)
  - Ageusia [Recovering/Resolving]
  - Respiratory tract infection [Recovered/Resolved]
  - SARS-CoV-2 test positive [Recovered/Resolved]
  - Body temperature increased [Recovering/Resolving]
  - COVID-19 [Recovered/Resolved]
  - Illness [Unknown]
  - Anosmia [Recovering/Resolving]

NARRATIVE: CASE EVENT DATE: 202010
